FAERS Safety Report 24818629 (Version 2)
Quarter: 2025Q3

REPORT INFORMATION
  Report Type: Spontaneous
  Country: AU (occurrence: AU)
  Receive Date: 20250108
  Receipt Date: 20250701
  Transmission Date: 20251020
  Serious: Yes (Other)
  Sender: Haleon PLC
  Company Number: AU-HALEON-2220957

PATIENT
  Sex: Male

DRUGS (1)
  1. PANADOL [Suspect]
     Active Substance: ACETAMINOPHEN
     Indication: Osteoarthritis

REACTIONS (1)
  - Foreign body in throat [Unknown]
